FAERS Safety Report 5999889-4 (Version None)
Quarter: 2008Q4

REPORT INFORMATION
  Report Type: 
  Country: None (occurrence: None)
  Receive Date: 20081215
  Receipt Date: 20081203
  Transmission Date: 20090506
  Serious: Yes (Hospitalization, Other)
  Sender: FDA-Public Use
  Company Number: PHHY2008JP29890

PATIENT
  Age: 68 Year
  Sex: Female

DRUGS (1)
  1. GLEEVEC [Suspect]
     Dosage: 400 MG/DAY
     Route: 048

REACTIONS (4)
  - ANAEMIA [None]
  - ANOREXIA [None]
  - GASTRECTOMY [None]
  - GENERALISED OEDEMA [None]
